FAERS Safety Report 4866421-8 (Version None)
Quarter: 2005Q4

REPORT INFORMATION
  Report Type: 
  Country: None (occurrence: None)
  Receive Date: 20051227
  Receipt Date: 20050930
  Transmission Date: 20060501
  Serious: Yes (Hospitalization, Disabling, Other)
  Sender: FDA-Public Use
  Company Number: US-MERCK-0510USA02031

PATIENT
  Age: 66 Year
  Sex: Male
  Weight: 114 kg

DRUGS (7)
  1. VIOXX [Suspect]
     Indication: ARTHRITIS
     Route: 048
     Dates: start: 20001101, end: 20010101
  2. VIOXX [Suspect]
     Route: 048
     Dates: start: 20010101, end: 20040901
  3. CARTIA XT [Concomitant]
     Indication: HYPERTENSION
     Route: 065
  4. PREVACID [Concomitant]
     Indication: HYPERCHLORHYDRIA
     Route: 065
  5. ZESTRIL [Concomitant]
     Route: 065
  6. ALLOPURINOL [Concomitant]
     Route: 065
  7. COUMADIN [Concomitant]
     Route: 065

REACTIONS (18)
  - ANAEMIA [None]
  - APHAKIA [None]
  - ARTERIOSCLEROSIS CORONARY ARTERY [None]
  - ATRIAL FIBRILLATION [None]
  - BLOOD CHOLESTEROL INCREASED [None]
  - CARDIAC FAILURE CONGESTIVE [None]
  - CARDIOMEGALY [None]
  - CHEST PAIN [None]
  - CORONARY ARTERY RESTENOSIS [None]
  - HEAD INJURY [None]
  - HYPOKALAEMIA [None]
  - HYPOTENSION [None]
  - MENISCUS LESION [None]
  - MUSCLE STRAIN [None]
  - MYOCARDIAL INFARCTION [None]
  - RETINAL DISORDER [None]
  - ROAD TRAFFIC ACCIDENT [None]
  - SKELETAL INJURY [None]
